FAERS Safety Report 16250936 (Version 2)
Quarter: 2019Q2

REPORT INFORMATION
  Report Type: Spontaneous
  Country: US (occurrence: US)
  Receive Date: 20190429
  Receipt Date: 20190610
  Transmission Date: 20190711
  Serious: No
  Sender: FDA-Public Use
  Company Number: US-ALKERMES INC.-ALK-2019-001550

PATIENT
  Age: 22 Year
  Sex: Female
  Weight: 126.53 kg

DRUGS (2)
  1. ARISTADA INITIO [Suspect]
     Active Substance: ARIPIPRAZOLE LAUROXIL
     Indication: BORDERLINE PERSONALITY DISORDER
     Dosage: 675 MG, ONE TIME DOSE
     Route: 030
     Dates: start: 20181207, end: 20181207
  2. ARISTADA [Suspect]
     Active Substance: ARIPIPRAZOLE LAUROXIL
     Indication: BORDERLINE PERSONALITY DISORDER
     Dosage: 1064 MG, Q8WK
     Route: 030
     Dates: start: 20181207, end: 201901

REACTIONS (4)
  - Pain in extremity [Recovered/Resolved]
  - Off label use [Recovered/Resolved]
  - Injection site pain [Recovered/Resolved]
  - Visual impairment [Unknown]

NARRATIVE: CASE EVENT DATE: 201812
